FAERS Safety Report 9409584 (Version 2)
Quarter: 2013Q3

REPORT INFORMATION
  Report Type: Spontaneous
  Country: JP (occurrence: JP)
  Receive Date: 20130719
  Receipt Date: 20130806
  Transmission Date: 20140515
  Serious: Yes (Other)
  Sender: FDA-Public Use
  Company Number: PHHY2013JP067315

PATIENT
  Sex: Male

DRUGS (3)
  1. METHYLPHENIDATE [Suspect]
  2. ANXIOLYTICS [Suspect]
  3. ANTIDEPRESSANTS [Suspect]

REACTIONS (6)
  - Suicide attempt [Unknown]
  - Alcoholism [Unknown]
  - Overdose [Unknown]
  - Impulsive behaviour [Unknown]
  - Drug dependence [Recovered/Resolved]
  - Drug abuse [Recovered/Resolved]
